FAERS Safety Report 8605848 (Version 3)
Quarter: 2012Q4

REPORT INFORMATION
  Report Type: 
  Country: JP (occurrence: JP)
  Receive Date: 20120608
  Receipt Date: 20120910
  Transmission Date: 20130627
  Serious: Yes (Death)
  Sender: FDA-Public Use
  Company Number: JP-ELI_LILLY_AND_COMPANY-JP201205010430

PATIENT
  Age: 80 Year
  Sex: Female
  Weight: 57 kg

DRUGS (16)
  1. GEMZAR [Suspect]
     Indication: PANCREATIC CARCINOMA STAGE IV
     Dosage: 1500 mg, UNK
     Route: 042
     Dates: start: 20120528, end: 20120528
  2. GRANISETRON HYDROCHLORIDE [Concomitant]
     Indication: PROPHYLAXIS
     Dosage: 1 mg, UNK
     Route: 042
     Dates: start: 20120528, end: 20120528
  3. RINDERON [Concomitant]
     Indication: PROPHYLAXIS
     Dosage: 2 mg, UNK
     Route: 042
     Dates: start: 20120528, end: 20120528
  4. OXYCONTIN [Concomitant]
     Dosage: 10 mg, UNK
     Route: 048
     Dates: start: 20120516, end: 20120528
  5. OXYCONTIN [Concomitant]
     Dosage: 15 mg, UNK
     Route: 048
     Dates: start: 20120529, end: 20120529
  6. OXYCONTIN [Concomitant]
     Dosage: 10 mg, UNK
     Route: 048
     Dates: start: 20120530, end: 20120530
  7. SUNRYTHM [Concomitant]
     Dosage: 75 mg, UNK
     Route: 048
     Dates: start: 20120510, end: 20120530
  8. BUP-4 [Concomitant]
     Dosage: 20 mg, UNK
     Dates: start: 20120510, end: 20120530
  9. MEVALOTIN [Concomitant]
     Dosage: UNK
     Route: 048
     Dates: start: 20120510, end: 20120530
  10. FERROMIA [Concomitant]
     Dosage: 100 mg, UNK
     Route: 048
     Dates: start: 20120510, end: 20120530
  11. LOXONIN [Concomitant]
     Dosage: 180 mg, UNK
     Route: 048
     Dates: start: 20120510, end: 20120530
  12. PARIET [Concomitant]
     Dosage: 10 mg, UNK
     Route: 048
     Dates: start: 20120511, end: 20120530
  13. NOVAMIN [Concomitant]
     Dosage: 15 mg, UNK
     Route: 048
     Dates: start: 20120516, end: 20120530
  14. WYSTAL [Concomitant]
     Dosage: UNK
     Dates: start: 20120515, end: 20120515
  15. WYSTAL [Concomitant]
     Dosage: UNK
     Dates: start: 20120528, end: 20120528
  16. WYSTAL [Concomitant]
     Dosage: UNK
     Dates: start: 20120529, end: 20120529

REACTIONS (2)
  - Circulatory collapse [Fatal]
  - Hepatitis fulminant [Fatal]
